FAERS Safety Report 6501452-3 (Version None)
Quarter: 2009Q4

REPORT INFORMATION
  Report Type: 
  Country: None (occurrence: None)
  Receive Date: 20091216
  Receipt Date: 20091207
  Transmission Date: 20100525
  Serious: Yes (Hospitalization, Other)
  Sender: FDA-Public Use
  Company Number: FR-JNJFOC-20091202888

PATIENT
  Age: 47 Year
  Sex: Male
  Weight: 45 kg

DRUGS (10)
  1. RISPERDAL [Suspect]
     Indication: WRONG DRUG ADMINISTERED
     Route: 048
     Dates: start: 20091103, end: 20091103
  2. DEPAKOTE [Suspect]
     Indication: WRONG DRUG ADMINISTERED
     Route: 048
     Dates: start: 20091103, end: 20091103
  3. LOXAPAC [Suspect]
     Indication: WRONG DRUG ADMINISTERED
     Route: 048
     Dates: start: 20091103, end: 20091103
  4. ZOLOFT [Suspect]
     Indication: WRONG DRUG ADMINISTERED
     Route: 048
     Dates: start: 20091103, end: 20091103
  5. TERCIAN [Suspect]
     Indication: WRONG DRUG ADMINISTERED
     Route: 048
     Dates: start: 20091103, end: 20091103
  6. PARKINANE [Suspect]
     Indication: WRONG DRUG ADMINISTERED
     Route: 048
     Dates: start: 20091103, end: 20091103
  7. DEBRIDAT [Concomitant]
     Route: 065
  8. CRESTOR [Concomitant]
     Route: 065
  9. AERIUS [Concomitant]
     Route: 065
  10. SPAGULAX [Concomitant]
     Route: 065

REACTIONS (5)
  - BRADYCARDIA [None]
  - DRUG DISPENSING ERROR [None]
  - MEDICATION ERROR [None]
  - SOMNOLENCE [None]
  - WRONG DRUG ADMINISTERED [None]
